FAERS Safety Report 6396822-0 (Version None)
Quarter: 2009Q4

REPORT INFORMATION
  Report Type: 
  Country: None (occurrence: None)
  Receive Date: 20091012
  Receipt Date: 20091005
  Transmission Date: 20100525
  Serious: Yes (Hospitalization)
  Sender: FDA-Public Use
  Company Number: IT-B.I. PHARMACEUTICALS,INC./RIDGEFIELD-2009-DE-06359GD

PATIENT
  Age: 76 Year
  Sex: Female
  Weight: 56.3 kg

DRUGS (3)
  1. TELMISARTAN [Suspect]
     Indication: HYPERTENSION
  2. MIRTAZAPINE [Suspect]
     Indication: DEPRESSION
     Dosage: 30 MG
  3. HYDROCHLOROTHIAZIDE [Suspect]
     Indication: HYPERTENSION

REACTIONS (4)
  - APHASIA [None]
  - CONFUSIONAL STATE [None]
  - HYPONATRAEMIA [None]
  - LETHARGY [None]
